FAERS Safety Report 7911412 (Version 2)
Quarter: 2018Q2

REPORT INFORMATION
  Report Type: Spontaneous
  Country: GR (occurrence: GR)
  Receive Date: 20110422
  Receipt Date: 20180523
  Transmission Date: 20180711
  Serious: Yes (Other)
  Sender: FDA-Public Use
  Company Number: GR-JNJFOC-20110405407

PATIENT
  Age: 20 Year
  Sex: Female

DRUGS (1)
  1. INFLIXIMAB, RECOMBINANT [Suspect]
     Active Substance: INFLIXIMAB
     Indication: CROHN^S DISEASE
     Dosage: 30 WEEKS OF TREATMENT FOR A TOTAL OF 6 DOSES
     Route: 042

REACTIONS (6)
  - Cyanosis [Unknown]
  - Tachycardia [Unknown]
  - Laryngospasm [Unknown]
  - Infusion related reaction [Unknown]
  - Dyspnoea [Unknown]
  - Dysphonia [Unknown]
